FAERS Safety Report 6479712-4 (Version None)
Quarter: 2009Q4

REPORT INFORMATION
  Report Type: 
  Country: None (occurrence: None)
  Receive Date: 20091119
  Receipt Date: 20090818
  Transmission Date: 20100525
  Serious: No
  Sender: FDA-Public Use
  Company Number: WAES 0908USA03017

PATIENT
  Age: 51 Year
  Sex: Male

DRUGS (5)
  1. JANUVIA [Suspect]
     Indication: DIABETES MELLITUS
     Dosage: 100 MG/DAILY/PO
     Route: 048
     Dates: start: 20080801
  2. GLUCOPHAGE [Concomitant]
  3. BENAZEPRIL HYDROCHLORIDE [Concomitant]
  4. DILTIAZEM HYDROCHLORIDE [Concomitant]
  5. GLIPIZIDE [Concomitant]

REACTIONS (1)
  - RENAL DISORDER [None]
